FAERS Safety Report 7922685-5 (Version None)
Quarter: 2011Q4

REPORT INFORMATION
  Report Type: 
  Country: None (occurrence: None)
  Receive Date: 20111117
  Receipt Date: 20110314
  Transmission Date: 20120403
  Serious: No
  Sender: FDA-Public Use
  Company Number: US-ALLERGAN-1103610US

PATIENT
  Age: 55 Year
  Sex: Female

DRUGS (3)
  1. DUREZOL [Concomitant]
     Dosage: 1 GTT, TID
     Route: 047
  2. COMBIGAN [Suspect]
     Indication: PRODUCT USED FOR UNKNOWN INDICATION
     Dosage: 1 GTT, BID
     Route: 047
     Dates: start: 20101001
  3. XALATAN [Concomitant]
     Dosage: 1 GTT, QHS
     Route: 047
     Dates: start: 20101001

REACTIONS (2)
  - PRURITUS GENERALISED [None]
  - URTICARIA [None]
